FAERS Safety Report 25526872 (Version 2)
Quarter: 2025Q3

REPORT INFORMATION
  Report Type: Report from Study
  Country: EU (occurrence: EU)
  Receive Date: 20250707
  Receipt Date: 20250921
  Transmission Date: 20251020
  Serious: Yes (Hospitalization)
  Sender: ABBVIE
  Company Number: EU-ABBVIE-6357023

PATIENT
  Age: 85 Year
  Sex: Male

DRUGS (2)
  1. CARBIDOPA\LEVODOPA [Suspect]
     Active Substance: CARBIDOPA\LEVODOPA
     Indication: Parkinson^s disease
     Route: 050
     Dates: start: 20250606
  2. CARBIDOPA\LEVODOPA [Suspect]
     Active Substance: CARBIDOPA\LEVODOPA
     Route: 050

REACTIONS (4)
  - Chills [Not Recovered/Not Resolved]
  - Dysphagia [Not Recovered/Not Resolved]
  - Dysarthria [Not Recovered/Not Resolved]
  - Parkinson^s disease [Unknown]

NARRATIVE: CASE EVENT DATE: 20250101
